FAERS Safety Report 4360175-X (Version None)
Quarter: 2004Q2

REPORT INFORMATION
  Report Type: 
  Country: None (occurrence: None)
  Receive Date: 20040514
  Receipt Date: 20040506
  Transmission Date: 20050107
  Serious: Yes (Other)
  Sender: FDA-Public Use
  Company Number: 2004IM000638

PATIENT
  Age: 49 Year
  Sex: Female
  Weight: 67 kg

DRUGS (4)
  1. ACTIMMUNE [Suspect]
     Indication: NON-HODGKIN'S LYMPHOMA
     Dosage: 200 UG; TIW; SUBCUTANEOUS
     Route: 058
     Dates: start: 20040309, end: 20040417
  2. RITUXIMAB (RITUXIMAB) [Suspect]
     Indication: NON-HODGKIN'S LYMPHOMA
     Dosage: 659.25 MG;QW; INTRAVENOUS
     Route: 042
     Dates: start: 20040316, end: 20040406
  3. MABCAMPATH (BEING QUERIED) [Suspect]
     Indication: NON-HODGKIN'S LYMPHOMA
  4. FLUDARA [Suspect]
     Indication: NON-HODGKIN'S LYMPHOMA

REACTIONS (1)
  - LYMPHOPENIA [None]
